FAERS Safety Report 6377974-5 (Version None)
Quarter: 2009Q3

REPORT INFORMATION
  Report Type: 
  Country: None (occurrence: None)
  Receive Date: 20090925
  Receipt Date: 20090921
  Transmission Date: 20100115
  Serious: Yes (Death, Other)
  Sender: FDA-Public Use
  Company Number: PHEH2009US09398

PATIENT
  Sex: Male
  Weight: 77.098 kg

DRUGS (10)
  1. GLEEVEC [Suspect]
     Indication: GASTROINTESTINAL STROMAL TUMOUR
     Dosage: 400 MG, QD
     Route: 048
     Dates: start: 20090314, end: 20090321
  2. GLEEVEC [Suspect]
     Dosage: 400 MG, QD
     Route: 048
     Dates: start: 20090325
  3. PLAVIX [Concomitant]
     Route: 048
  4. MEGACE [Concomitant]
     Dosage: 5 ML, QD
     Route: 048
  5. NORVASC [Concomitant]
     Route: 048
  6. SIMVASTATIN [Concomitant]
     Dosage: 5 MG, QD
     Route: 048
  7. ALTACE [Concomitant]
     Route: 048
  8. CARVEDILOL [Concomitant]
     Dosage: 6.25 MG, BID
     Route: 048
  9. HYDROCHLOROTHIAZIDE [Concomitant]
     Dosage: 25 MG, UNK
     Route: 048
  10. ACTOS [Concomitant]
     Dosage: 15 MG, QD
     Route: 048

REACTIONS (26)
  - ASTHENIA [None]
  - BLOOD CREATININE INCREASED [None]
  - BLOOD GLUCOSE INCREASED [None]
  - BLOOD UREA INCREASED [None]
  - CARDIAC DISORDER [None]
  - CARDIAC PACEMAKER REVISION [None]
  - DIZZINESS [None]
  - FATIGUE [None]
  - FLATULENCE [None]
  - GASTROINTESTINAL HAEMORRHAGE [None]
  - HAEMATOCRIT DECREASED [None]
  - HAEMOGLOBIN DECREASED [None]
  - HEPATOMEGALY [None]
  - HYPOTENSION [None]
  - LIVER TENDERNESS [None]
  - LYMPHOCYTE COUNT DECREASED [None]
  - MALIGNANT NEOPLASM PROGRESSION [None]
  - MEAN CELL VOLUME DECREASED [None]
  - MICROCYTIC ANAEMIA [None]
  - NEUTROPHIL COUNT INCREASED [None]
  - PALLOR [None]
  - PALPITATIONS [None]
  - PLATELET COUNT INCREASED [None]
  - SERUM FERRITIN INCREASED [None]
  - TRANSFERRIN SATURATION DECREASED [None]
  - WHITE BLOOD CELL COUNT INCREASED [None]
